FAERS Safety Report 5108144-6 (Version None)
Quarter: 2006Q3

REPORT INFORMATION
  Report Type: 
  Country: None (occurrence: None)
  Receive Date: 20060919
  Receipt Date: 20060913
  Transmission Date: 20061208
  Serious: Yes (Hospitalization, Disabling)
  Sender: FDA-Public Use
  Company Number: JP-JPN-A200603680

PATIENT
  Age: 89 Year
  Sex: Male

DRUGS (3)
  1. PAXIL [Suspect]
     Indication: DEPRESSION
     Dosage: 20MG PER DAY
     Route: 048
     Dates: start: 20060526, end: 20060906
  2. LASIX [Concomitant]
     Route: 065
     Dates: start: 20050828
  3. ASPIRIN [Concomitant]
     Route: 048
     Dates: start: 20050828

REACTIONS (2)
  - RHABDOMYOLYSIS [None]
  - SEROTONIN SYNDROME [None]
